FAERS Safety Report 13027630 (Version 3)
Quarter: 2017Q1

REPORT INFORMATION
  Report Type: Report from Study
  Country: CA (occurrence: CA)
  Receive Date: 20161214
  Receipt Date: 20170116
  Transmission Date: 20170428
  Serious: Yes (Other)
  Sender: FDA-Public Use
  Company Number: CA-JNJFOC-20161127205

PATIENT
  Age: 87 Year
  Sex: Male

DRUGS (1)
  1. IMBRUVICA [Suspect]
     Active Substance: IBRUTINIB
     Indication: CHRONIC LYMPHOCYTIC LEUKAEMIA
     Dosage: (IN THE A.M)
     Route: 048
     Dates: start: 20161122

REACTIONS (10)
  - Fatigue [Unknown]
  - Anaemia [Unknown]
  - Paraesthesia [Not Recovered/Not Resolved]
  - Peripheral swelling [Recovering/Resolving]
  - Rash [Recovered/Resolved]
  - Dry mouth [Unknown]
  - Asthenia [Unknown]
  - Diarrhoea [Not Recovered/Not Resolved]
  - Basal cell carcinoma [Unknown]
  - Mucous membrane disorder [Unknown]

NARRATIVE: CASE EVENT DATE: 201612
